FAERS Safety Report 7152833-9 (Version None)
Quarter: 2010Q4

REPORT INFORMATION
  Report Type: 
  Country: None (occurrence: None)
  Receive Date: 20101213
  Receipt Date: 20101206
  Transmission Date: 20110411
  Serious: Yes (Other)
  Sender: FDA-Public Use
  Company Number: PHHO2010DE18472

PATIENT
  Sex: Female
  Weight: 58 kg

DRUGS (1)
  1. ZOLEDRONATE T29581+ [Suspect]
     Indication: MULTIPLE MYELOMA
     Dosage: 4 MG, EVERY 4 WEEKS
     Route: 042
     Dates: start: 20030730, end: 20041007

REACTIONS (1)
  - OSTEONECROSIS OF JAW [None]
